FAERS Safety Report 4712469-3 (Version None)
Quarter: 2005Q2

REPORT INFORMATION
  Report Type: 
  Country: None (occurrence: None)
  Receive Date: 20050629
  Receipt Date: 20050329
  Transmission Date: 20051028
  Serious: No
  Sender: FDA-Public Use
  Company Number: 05P-163-0295444-00

PATIENT
  Age: 65 Year
  Sex: Female
  Weight: 100 kg

DRUGS (8)
  1. HUMIRA [Suspect]
     Indication: RHEUMATOID ARTHRITIS
     Dosage: 40 MG, 1 IN 2 WK, SUBCUTANEOUS
     Route: 058
     Dates: start: 20040101, end: 20050201
  2. BUCINDOLOL HYDROCHLORIDE [Concomitant]
  3. CLOPIDOGREL BISULFATE [Concomitant]
  4. METHADONE [Concomitant]
  5. LEVOTHYROXINE SODIUM [Concomitant]
  6. SERTRALINE HYDROCHLORIDE [Concomitant]
  7. LANSOPRAZOLE [Concomitant]
  8. DIOVAN [Concomitant]

REACTIONS (3)
  - ABDOMINAL PAIN [None]
  - BRONCHITIS [None]
  - RHEUMATOID ARTHRITIS [None]
